FAERS Safety Report 6570690-6 (Version None)
Quarter: 2010Q1

REPORT INFORMATION
  Report Type: 
  Country: None (occurrence: None)
  Receive Date: 20100204
  Receipt Date: 20100202
  Transmission Date: 20100710
  Serious: Yes (Other)
  Sender: FDA-Public Use
  Company Number: A0842606A

PATIENT
  Age: 80 Year
  Sex: Female

DRUGS (2)
  1. VERAMYST [Suspect]
     Dosage: 2SPR PER DAY
     Route: 045
     Dates: start: 20090801
  2. ZOCOR [Concomitant]

REACTIONS (3)
  - BORDERLINE GLAUCOMA [None]
  - CATARACT [None]
  - OFF LABEL USE [None]
